FAERS Safety Report 11272067 (Version 1)
Quarter: 2015Q3

REPORT INFORMATION
  Report Type: Spontaneous
  Country: GB (occurrence: None)
  Receive Date: 20150713
  Receipt Date: 20150713
  Transmission Date: 20151125
  Serious: Yes (Life-Threatening, Hospitalization)
  Sender: FDA-Public Use
  Company Number: 2015GB0396

PATIENT

DRUGS (11)
  1. ACICLOVIR (ACICLOVIR) (ACICLOVIR) [Concomitant]
  2. ONDANSETRON [Concomitant]
     Active Substance: ONDANSETRON
  3. ETOPOSIDE. [Concomitant]
     Active Substance: ETOPOSIDE
  4. URSODEOXYCHOLIC ACID (UROSDEOXYCHOLIC ACID) [Concomitant]
  5. DEXAMETHASONE. [Concomitant]
     Active Substance: DEXAMETHASONE
  6. DALTEPARIN (DALTEPARIN) (DALTEPARIN) [Concomitant]
  7. ITRACONAZOLE. [Concomitant]
     Active Substance: ITRACONAZOLE
  8. KEPIVANCE [Suspect]
     Active Substance: PALIFERMIN
     Dosage: 5 MG - 9, DAY 0, DAY 2, DAY 4, (5 MG, 1 IN 1 D) INTRAVENOUS
     Route: 042
     Dates: start: 20140806, end: 20140819
  9. RANITIDINE [Concomitant]
     Active Substance: RANITIDINE\RANITIDINE HYDROCHLORIDE
  10. VITAMIN K (VITAMIN K NOS) [Concomitant]
  11. CO-FUMAZOLE (CLOTRIMAZOLE) [Concomitant]

REACTIONS (6)
  - Skin graft [None]
  - Dermatitis exfoliative [None]
  - Neutropenic sepsis [None]
  - Staphylococcal scalded skin syndrome [None]
  - Skin exfoliation [None]
  - Skin infection [None]

NARRATIVE: CASE EVENT DATE: 20140809
